FAERS Safety Report 19411149 (Version 1)
Quarter: 2021Q2

REPORT INFORMATION
  Report Type: Spontaneous
  Country: US (occurrence: US)
  Receive Date: 20210614
  Receipt Date: 20210614
  Transmission Date: 20210717
  Serious: No
  Sender: FDA-Public Use
  Company Number: US-GILEAD-2021-0534641

PATIENT
  Sex: Male

DRUGS (5)
  1. TEGRETOL [Concomitant]
     Active Substance: CARBAMAZEPINE
  2. REMERON [Concomitant]
     Active Substance: MIRTAZAPINE
  3. ZYPREXA [Concomitant]
     Active Substance: OLANZAPINE
  4. SOFOSBUVIR;VELPATASVIR [Suspect]
     Active Substance: SOFOSBUVIR\VELPATASVIR
     Indication: CHRONIC HEPATITIS C
     Dosage: 1 DOSAGE FORM, QD
     Route: 048
     Dates: start: 20210303, end: 202105
  5. LORATADINE. [Concomitant]
     Active Substance: LORATADINE

REACTIONS (1)
  - Intentional dose omission [Unknown]
